FAERS Safety Report 7808922-6 (Version None)
Quarter: 2011Q4

REPORT INFORMATION
  Report Type: 
  Country: None (occurrence: None)
  Receive Date: 20111012
  Receipt Date: 20110720
  Transmission Date: 20120403
  Serious: Yes (Hospitalization)
  Sender: FDA-Public Use
  Company Number: GB-UCBSA-005777

PATIENT
  Age: 83 Year
  Sex: Female

DRUGS (11)
  1. DEXTROMORAMIDE [Suspect]
     Indication: CANCER PAIN
  2. MORPHINE SULFATE [Suspect]
     Indication: CANCER PAIN
     Route: 048
  3. CORTICOSTEROIDS [Concomitant]
  4. ACETAMINOPHEN AND CODEINE PHOSPHATE [Suspect]
     Indication: CANCER PAIN
     Route: 048
  5. FENTANYL [Suspect]
     Indication: CANCER PAIN
  6. CELECOXIB [Concomitant]
  7. PAMIDRONATE DISODIUM [Concomitant]
  8. OXYCODONE HCL [Suspect]
     Indication: CANCER PAIN
  9. ACETAMINOPHEN [Concomitant]
  10. METHADONE HCL [Suspect]
     Indication: COUGH
  11. TRAMADOL HCL [Suspect]
     Indication: CANCER PAIN

REACTIONS (5)
  - FLUSHING [None]
  - DIZZINESS [None]
  - HYPERHIDROSIS [None]
  - TYPE I HYPERSENSITIVITY [None]
  - FEELING HOT [None]
